FAERS Safety Report 14203708 (Version 1)
Quarter: 2017Q4

REPORT INFORMATION
  Report Type: Spontaneous
  Country: US (occurrence: None)
  Receive Date: 20171117
  Receipt Date: 20171117
  Transmission Date: 20180321
  Serious: Yes (Hospitalization)
  Sender: FDA-Public Use
  Company Number: None

PATIENT
  Age: 63 Year
  Sex: Female

DRUGS (1)
  1. PROLIA [Suspect]
     Active Substance: DENOSUMAB
     Indication: OSTEOPOROSIS
     Dosage: 60MG SQ Q6M
     Route: 058
     Dates: start: 20170414

REACTIONS (3)
  - Gingivitis [None]
  - Infection [None]
  - Impaired healing [None]

NARRATIVE: CASE EVENT DATE: 20170913
